FAERS Safety Report 4660018-0 (Version None)
Quarter: 2005Q2

REPORT INFORMATION
  Report Type: 
  Country: None (occurrence: None)
  Receive Date: 20050512
  Receipt Date: 20050429
  Transmission Date: 20051028
  Serious: Yes (Other)
  Sender: FDA-Public Use
  Company Number: GBWYE633129APR05

PATIENT
  Sex: Female
  Weight: 84 kg

DRUGS (3)
  1. ENBREL [Suspect]
     Indication: RHEUMATOID ARTHRITIS
     Route: 058
     Dates: start: 20040329, end: 20040827
  2. CELEBREX [Concomitant]
  3. PREDNISOLONE [Concomitant]

REACTIONS (2)
  - PNEUMONITIS [None]
  - SARCOIDOSIS [None]
